FAERS Safety Report 9130746 (Version 3)
Quarter: 2015Q4

REPORT INFORMATION
  Report Type: Report from Study
  Country: DE (occurrence: DE)
  Receive Date: 20130301
  Receipt Date: 20151224
  Transmission Date: 20160305
  Serious: Yes (Hospitalization, Other)
  Sender: FDA-Public Use
  Company Number: PHHY2013DE020170

PATIENT
  Age: 54 Year
  Sex: Female
  Weight: 96.5 kg

DRUGS (11)
  1. RANITIC [Concomitant]
     Active Substance: RANITIDINE HYDROCHLORIDE
     Indication: PRODUCT USED FOR UNKNOWN INDICATION
     Dosage: 150 MG, QD ONCE IN THE EVENING
     Route: 065
  2. EXTAVIA [Suspect]
     Active Substance: INTERFERON BETA-1B
     Indication: MULTIPLE SCLEROSIS
     Dosage: 1 ML, QOD
     Route: 058
     Dates: start: 20121031, end: 20121206
  3. IBUPROFEN. [Concomitant]
     Active Substance: IBUPROFEN
     Indication: ANTIVIRAL PROPHYLAXIS
     Dosage: 600 MG, QOD
     Route: 048
     Dates: start: 201210
  4. EXTAVIA [Suspect]
     Active Substance: INTERFERON BETA-1B
     Dosage: 1 ML, QOD
     Route: 058
     Dates: start: 20121208
  5. L-THYROXINE [Concomitant]
     Active Substance: LEVOTHYROXINE
     Indication: SUPPLEMENTATION THERAPY
     Dosage: 125 UG, QD
     Route: 048
     Dates: start: 198912
  6. CIPRALEX [Concomitant]
     Active Substance: ESCITALOPRAM OXALATE
     Indication: PRODUCT USED FOR UNKNOWN INDICATION
     Dosage: 20 MG, UNK
     Route: 065
     Dates: start: 201202
  7. HEPARIN [Concomitant]
     Active Substance: HEPARIN SODIUM
     Indication: ANTICOAGULANT THERAPY
     Route: 065
  8. RANITIDIN [Concomitant]
     Active Substance: RANITIDINE HYDROCHLORIDE
     Indication: GASTRIC DISORDER
     Dosage: 300 MG, UNK
     Route: 048
     Dates: start: 201211
  9. OPIPRAMOL [Concomitant]
     Active Substance: OPIPRAMOL
     Indication: DEPRESSION
     Dosage: 75 MG, UNK
     Route: 048
     Dates: start: 201302
  10. MIRTAZAPINE. [Concomitant]
     Active Substance: MIRTAZAPINE
     Indication: PRODUCT USED FOR UNKNOWN INDICATION
     Dosage: 15 MG, QD (NIGHT)
     Route: 065
  11. PARACETAMOL [Concomitant]
     Active Substance: ACETAMINOPHEN
     Indication: PAIN
     Dosage: 500 MG, PRN
     Route: 048

REACTIONS (29)
  - Dysphagia [Recovered/Resolved with Sequelae]
  - Feeling cold [Unknown]
  - Eyelid ptosis [Unknown]
  - Merycism [Unknown]
  - Cerebrovascular accident [Recovered/Resolved with Sequelae]
  - Malaise [Recovering/Resolving]
  - Multiple sclerosis relapse [Unknown]
  - Gait disturbance [Unknown]
  - Tremor [Unknown]
  - Middle insomnia [Unknown]
  - Hemiparesis [Recovered/Resolved with Sequelae]
  - Paraesthesia [Unknown]
  - Intracranial aneurysm [Unknown]
  - Sleep disorder [Unknown]
  - Anxiety [Unknown]
  - Cerebral infarction [Recovering/Resolving]
  - Sensory disturbance [Unknown]
  - Depressed mood [Unknown]
  - Mental impairment [Unknown]
  - Burning sensation [Unknown]
  - Spinal cord disorder [Unknown]
  - Vision blurred [Unknown]
  - Hypoaesthesia [Unknown]
  - Vitamin D decreased [Unknown]
  - Post procedural pulmonary embolism [Recovered/Resolved]
  - Speech disorder [Recovered/Resolved with Sequelae]
  - Angina pectoris [Unknown]
  - Lhermitte^s sign [Unknown]
  - Depressive symptom [Unknown]

NARRATIVE: CASE EVENT DATE: 20121205
